FAERS Safety Report 11472419 (Version 5)
Quarter: 2015Q4

REPORT INFORMATION
  Report Type: Spontaneous
  Country: US (occurrence: None)
  Receive Date: 20150908
  Receipt Date: 20151030
  Transmission Date: 20160304
  Serious: Yes (Other)
  Sender: FDA-Public Use
  Company Number: US-MDT-ADR-2015-01730

PATIENT
  Age: 14 Year
  Sex: Male

DRUGS (1)
  1. COMPOUNDED BACLOFEN INTRATHECAL 6000 MCG/ML [Suspect]
     Active Substance: BACLOFEN
     Dosage: 2931 MCG/DAY

REACTIONS (5)
  - Overdose [None]
  - Hypotonia [None]
  - Seizure [None]
  - Muscle spasticity [None]
  - Respiratory rate increased [None]
